FAERS Safety Report 5389970-5 (Version None)
Quarter: 2007Q3

REPORT INFORMATION
  Report Type: 
  Country: None (occurrence: None)
  Receive Date: 20070718
  Receipt Date: 20070711
  Transmission Date: 20080115
  Serious: Yes (Hospitalization)
  Sender: FDA-Public Use
  Company Number: AT-BAYER-200713793GDS

PATIENT
  Age: 48 Year
  Sex: Female

DRUGS (8)
  1. SORAFENIB [Suspect]
     Indication: RENAL CANCER METASTATIC
     Dosage: TOTAL DAILY DOSE: 800 MG  UNIT DOSE: 200 MG
     Route: 048
     Dates: start: 20070323, end: 20070410
  2. SORAFENIB [Suspect]
     Dosage: TOTAL DAILY DOSE: 400 MG  UNIT DOSE: 200 MG
     Route: 048
     Dates: start: 20070416
  3. LANITOP [Concomitant]
     Indication: DRUG USE FOR UNKNOWN INDICATION
     Dosage: TOTAL DAILY DOSE: 0.15 MG
     Route: 042
     Dates: start: 20070410
  4. LANITOP [Concomitant]
     Route: 042
     Dates: start: 20070411, end: 20070411
  5. DIGIMERCK [Concomitant]
     Indication: DRUG USE FOR UNKNOWN INDICATION
     Route: 065
     Dates: start: 20070408, end: 20070410
  6. CONCOR [Concomitant]
     Indication: DRUG USE FOR UNKNOWN INDICATION
     Route: 065
     Dates: start: 20070410
  7. CORON [Concomitant]
     Indication: DRUG USE FOR UNKNOWN INDICATION
     Dosage: TOTAL DAILY DOSE: 200 MG
     Route: 065
     Dates: start: 20070508
  8. CORON [Concomitant]
     Dosage: TOTAL DAILY DOSE: 400 MG
     Route: 065
     Dates: start: 20070430

REACTIONS (4)
  - CHEST PAIN [None]
  - COUGH [None]
  - DYSPNOEA [None]
  - TACHYCARDIA [None]
